FAERS Safety Report 4640050-3 (Version None)
Quarter: 2005Q2

REPORT INFORMATION
  Report Type: 
  Country: None (occurrence: None)
  Receive Date: 20050415
  Receipt Date: 20050404
  Transmission Date: 20051028
  Serious: Yes (Hospitalization, Other)
  Sender: FDA-Public Use
  Company Number: 2005UW02024

PATIENT
  Sex: Female

DRUGS (2)
  1. CRESTOR [Suspect]
     Indication: BLOOD CHOLESTEROL INCREASED
     Dosage: 5 MG QD PO
     Route: 048
  2. CRESTOR [Suspect]
     Indication: BLOOD CHOLESTEROL INCREASED
     Dosage: 50 MG ONCE PO
     Route: 048

REACTIONS (4)
  - ACCIDENTAL OVERDOSE [None]
  - DEPRESSION [None]
  - DRUG PRESCRIBING ERROR [None]
  - PRESCRIBED OVERDOSE [None]
